FAERS Safety Report 11865816 (Version 1)
Quarter: 2015Q4

REPORT INFORMATION
  Report Type: Spontaneous
  Country: FR (occurrence: FR)
  Receive Date: 20151223
  Receipt Date: 20151223
  Transmission Date: 20160305
  Serious: Yes (Other)
  Sender: FDA-Public Use
  Company Number: FR-BAXTER-2015BAX067900

PATIENT
  Age: 45 Year
  Sex: Male
  Weight: 64 kg

DRUGS (16)
  1. VIT B1 [Suspect]
     Active Substance: THIAMINE
     Indication: PARENTERAL NUTRITION
     Route: 042
     Dates: start: 201511
  2. GLUCOSE 50 POUR CENT BAXTER, SOLUTION INJECTABLE POUR PERFUSION [Suspect]
     Active Substance: DEXTROSE
     Indication: PARENTERAL NUTRITION
     Route: 042
     Dates: start: 201511
  3. VINTENE, SOLUTION INJECTABLE POUR PERFUSION [Suspect]
     Active Substance: AMINO ACIDS
     Indication: PARENTERAL NUTRITION
     Route: 042
     Dates: start: 201511
  4. VITAMINE C [Suspect]
     Active Substance: ASCORBIC ACID
     Indication: PARENTERAL NUTRITION
     Route: 042
     Dates: start: 201511
  5. ZINC [Suspect]
     Active Substance: ZINC\ZINC CHLORIDE
     Indication: PARENTERAL NUTRITION
     Route: 042
     Dates: start: 201511
  6. VITAMIN E [Suspect]
     Active Substance: .ALPHA.-TOCOPHEROL
     Indication: PARENTERAL NUTRITION
     Route: 042
     Dates: start: 201511
  7. SELENIUM [Suspect]
     Active Substance: SELENIUM
     Indication: PARENTERAL NUTRITION
     Route: 042
     Dates: start: 201511
  8. WATER FOR INJECTION [Suspect]
     Active Substance: WATER
     Indication: PARENTERAL NUTRITION
     Route: 042
     Dates: start: 201511
  9. SODIUM CHLORIDE. [Suspect]
     Active Substance: SODIUM CHLORIDE
     Indication: PARENTERAL NUTRITION
     Route: 042
     Dates: start: 201511
  10. DECAN [Suspect]
     Active Substance: DEXAMETHASONE
     Indication: PARENTERAL NUTRITION
     Route: 042
     Dates: start: 201511
  11. VIT K1 [Suspect]
     Active Substance: PHYTONADIONE
     Indication: PARENTERAL NUTRITION
     Route: 042
     Dates: start: 201511
  12. VITAMIN B6 [Suspect]
     Active Substance: PYRIDOXINE HYDROCHLORIDE
     Indication: PARENTERAL NUTRITION
     Route: 042
     Dates: start: 201511
  13. POTASSIUM CHLORIDE. [Suspect]
     Active Substance: POTASSIUM CHLORIDE
     Indication: PARENTERAL NUTRITION
     Route: 042
     Dates: start: 201511
  14. MAGNESIUM SULPHATE [Suspect]
     Active Substance: MAGNESIUM SULFATE
     Indication: PARENTERAL NUTRITION
     Route: 042
     Dates: start: 201511
  15. CERNEVIT [Suspect]
     Active Substance: VITAMINS
     Indication: PARENTERAL NUTRITION
     Route: 042
     Dates: start: 201511
  16. MEDIALIPIDE (GLYCERIN\LECITHIN\TRIGLYCERIDES,UNSPECIFIED LENGTH\SOYBEAN OIL) [Suspect]
     Active Substance: GLYCERIN\LECITHIN\TRIGLYCERIDES,UNSPECIFIED LENGTH\SOYBEAN OIL
     Indication: PARENTERAL NUTRITION
     Route: 042
     Dates: start: 201511

REACTIONS (6)
  - Staphylococcal infection [Recovered/Resolved]
  - Device related infection [Recovered/Resolved]
  - Bacillus test positive [Unknown]
  - Product contamination microbial [Unknown]
  - Staphylococcus test positive [Unknown]
  - Drug administration error [None]

NARRATIVE: CASE EVENT DATE: 201512
